FAERS Safety Report 8593353-4 (Version None)
Quarter: 2012Q3

REPORT INFORMATION
  Report Type: 
  Country: None (occurrence: None)
  Receive Date: 20120814
  Receipt Date: 20120806
  Transmission Date: 20120928
  Serious: Yes (Other)
  Sender: FDA-Public Use
  Company Number: PE-TEVA-352504ISR

PATIENT
  Sex: Female

DRUGS (2)
  1. PHENYTOIN [Suspect]
     Indication: STATUS EPILEPTICUS
     Dosage: 1100MG
  2. VALPROIC ACID [Concomitant]
     Indication: EPILEPSY
     Route: 065

REACTIONS (3)
  - CHOREOATHETOSIS [None]
  - HALLUCINATION, VISUAL [None]
  - DYSKINESIA [None]
